FAERS Safety Report 19463057 (Version 1)
Quarter: 2021Q2

REPORT INFORMATION
  Report Type: Spontaneous
  Country: US (occurrence: US)
  Receive Date: 20210625
  Receipt Date: 20210625
  Transmission Date: 20210717
  Serious: Yes (Death, Life-Threatening, Hospitalization, Other)
  Sender: FDA-Public Use
  Company Number: US-BRISTOL-MYERS SQUIBB COMPANY-BMS-2021-058782

PATIENT
  Age: 77 Year
  Sex: Female

DRUGS (1)
  1. HYDROXYUREA. [Suspect]
     Active Substance: HYDROXYUREA
     Indication: ACUTE MYELOID LEUKAEMIA
     Route: 065

REACTIONS (4)
  - Intentional product use issue [Unknown]
  - Mucosal inflammation [Fatal]
  - Aspiration [Unknown]
  - Acute respiratory distress syndrome [Unknown]
